FAERS Safety Report 18356937 (Version 1)
Quarter: 2020Q4

REPORT INFORMATION
  Report Type: Report from Study
  Country: GB (occurrence: GB)
  Receive Date: 20201007
  Receipt Date: 20201007
  Transmission Date: 20210114
  Serious: Yes (Hospitalization)
  Sender: FDA-Public Use
  Company Number: GB-MYLANLABS-2020M1084667

PATIENT
  Sex: Male

DRUGS (1)
  1. BRABIO 20 MG/ML, SOLUTION FOR INJECTION, PRE-FILLED SYRINGE [Suspect]
     Active Substance: GLATIRAMER ACETATE
     Indication: MULTIPLE SCLEROSIS
     Dosage: 20 MILLIGRAM, QD
     Route: 058
     Dates: start: 2018

REACTIONS (1)
  - Hospitalisation [Recovered/Resolved]
